FAERS Safety Report 17103740 (Version 5)
Quarter: 2025Q3

REPORT INFORMATION
  Report Type: Report from Study
  Country: KR (occurrence: KR)
  Receive Date: 20191203
  Receipt Date: 20250803
  Transmission Date: 20251021
  Serious: Yes (Hospitalization, Other)
  Sender: ALEXION PHARMACEUTICALS
  Company Number: 2019SF71402

PATIENT
  Age: 62 Year
  Sex: Male

DRUGS (9)
  1. OSIMERTINIB [Suspect]
     Active Substance: OSIMERTINIB
     Indication: Non-small cell lung cancer
     Dosage: 80 MILLIGRAM, QD
     Dates: start: 20190729, end: 20190905
  2. OSIMERTINIB [Suspect]
     Active Substance: OSIMERTINIB
     Dosage: 40 MILLIGRAM, QD
     Dates: start: 20190918, end: 20200107
  3. KEPPRA [Concomitant]
     Active Substance: LEVETIRACETAM
     Indication: Seizure prophylaxis
     Route: 065
  4. KABALIN [Concomitant]
     Indication: Neuropathy peripheral
     Route: 065
  5. NALOXONE HYDROCHLORIDE\OXYCODONE HYDROCHLORIDE [Concomitant]
     Active Substance: NALOXONE HYDROCHLORIDE\OXYCODONE HYDROCHLORIDE
     Indication: Cancer pain
     Route: 065
  6. ESOMEZOL [Concomitant]
     Indication: Prophylaxis against gastrointestinal ulcer
     Route: 065
  7. HERBALS [Concomitant]
     Active Substance: HERBALS
     Indication: Dyspepsia
     Route: 065
  8. MINOCIN [Concomitant]
     Active Substance: MINOCYCLINE HYDROCHLORIDE
     Indication: C-reactive protein increased
     Route: 065
     Dates: start: 20190729, end: 20190902
  9. DEXAMETHASONE [Concomitant]
     Active Substance: DEXAMETHASONE
     Indication: Brain oedema
     Route: 065
     Dates: start: 20170719, end: 20190825

REACTIONS (2)
  - Drug-induced liver injury [Recovered/Resolved]
  - Asthenia [Recovered/Resolved]

NARRATIVE: CASE EVENT DATE: 20190902
